FAERS Safety Report 4992231-7 (Version None)
Quarter: 2006Q2

REPORT INFORMATION
  Report Type: 
  Country: None (occurrence: None)
  Receive Date: 20060502
  Receipt Date: 20060422
  Transmission Date: 20061013
  Serious: Yes (Other)
  Sender: FDA-Public Use
  Company Number: 2006054375

PATIENT
  Age: 53 Year
  Sex: Female

DRUGS (7)
  1. KAOPECTATE (BISMUTH SUBSALICYLATE) [Suspect]
     Indication: DIARRHOEA
     Dosage: 2 CAPLETS ONCE, ORAL
     Route: 048
     Dates: start: 20050101, end: 20050101
  2. ASCORBIC ACID [Concomitant]
  3. ATENOLOL [Concomitant]
  4. TOCOPHEROL (TOCOPHEROL) [Concomitant]
  5. TAMOXIFEN CITRATE [Concomitant]
  6. PAROXETINE HCL [Concomitant]
  7. CALCIUM (CALCIUM) [Concomitant]

REACTIONS (3)
  - ABDOMINAL PAIN UPPER [None]
  - DRUG INEFFECTIVE [None]
  - FAECES DISCOLOURED [None]
